FAERS Safety Report 13957336 (Version 1)
Quarter: 2017Q3

REPORT INFORMATION
  Report Type: Other
  Country: US (occurrence: US)
  Receive Date: 20170912
  Receipt Date: 20170912
  Transmission Date: 20171128
  Serious: Yes (Death, Hospitalization)
  Sender: FDA-Public Use
  Company Number: US-VELOXIS PHARMACEUTICALS-2025892

PATIENT
  Age: 18 Year
  Sex: Male

DRUGS (4)
  1. AZATHIOPRINE. [Suspect]
     Active Substance: AZATHIOPRINE
  2. PREDNISONE. [Suspect]
     Active Substance: PREDNISONE
  3. MYCOPHENOLATE MOFETIL. [Suspect]
     Active Substance: MYCOPHENOLATE MOFETIL
  4. ENVARSUS XR [Suspect]
     Active Substance: TACROLIMUS
     Indication: LIVER TRANSPLANT

REACTIONS (5)
  - Intentional product misuse [Unknown]
  - Cerebrovascular accident [Fatal]
  - Posterior reversible encephalopathy syndrome [Recovered/Resolved]
  - Brain abscess [Not Recovered/Not Resolved]
  - Intentional product use issue [Unknown]
